FAERS Safety Report 5219360-7 (Version None)
Quarter: 2007Q1

REPORT INFORMATION
  Report Type: 
  Country: None (occurrence: None)
  Receive Date: 20070125
  Receipt Date: 20070112
  Transmission Date: 20070707
  Serious: Yes (Disabling, Other)
  Sender: FDA-Public Use
  Company Number: FR-ELI_LILLY_AND_COMPANY-FR200701002648

PATIENT
  Age: 64 Year
  Sex: Female
  Weight: 57 kg

DRUGS (5)
  1. PROZAC [Suspect]
     Indication: DEPRESSION
     Dosage: 20 MG, DAILY (1/D)
     Route: 048
     Dates: end: 20060702
  2. RIVOTRIL                                /NOR/ [Concomitant]
     Indication: DEPRESSION
     Dosage: UNK, UNKNOWN
     Route: 048
     Dates: end: 20060702
  3. PIASCLEDINE [Concomitant]
     Dosage: 1 D/F, DAILY (1/D)
     Route: 048
     Dates: end: 20060702
  4. KERLONE [Concomitant]
     Dosage: 0.5 D/F, DAILY (1/D)
     Route: 048
     Dates: end: 20060702
  5. ARTHROTEC [Concomitant]
     Dosage: 2 D/F, DAILY (1/D)
     Route: 048
     Dates: end: 20060702

REACTIONS (4)
  - MACULAR DEGENERATION [None]
  - MITRAL VALVE STENOSIS [None]
  - RETINAL ARTERY THROMBOSIS [None]
  - VISUAL ACUITY REDUCED [None]
